FAERS Safety Report 5024913-5 (Version None)
Quarter: 2006Q2

REPORT INFORMATION
  Report Type: 
  Country: None (occurrence: None)
  Receive Date: 20060607
  Receipt Date: 20060522
  Transmission Date: 20061013
  Serious: Yes (Hospitalization)
  Sender: FDA-Public Use
  Company Number: DSA_28239_2006

PATIENT
  Age: 44 Year
  Sex: Male

DRUGS (12)
  1. TEMESTA [Suspect]
     Indication: BIPOLAR I DISORDER
     Dosage: 4.5 MG
     Dates: start: 20060212, end: 20060322
  2. LAMICTAL [Suspect]
     Dosage: 25 MG
     Dates: start: 20060221, end: 20060302
  3. ALNA [Concomitant]
  4. LAMICTAL [Suspect]
     Dosage: 50 MG
     Dates: start: 20060303, end: 20060307
  5. CLOZAPINE [Suspect]
     Dosage: 300 MG
     Dates: start: 20060212, end: 20060216
  6. CLOZAPINE [Suspect]
     Dosage: 400 MG
     Dates: start: 20060217, end: 20060225
  7. CLOZAPINE [Suspect]
     Dosage: 450 MG
     Dates: start: 20060226, end: 20060307
  8. CLOZAPINE [Suspect]
     Dosage: 150 MG
     Dates: start: 20060308, end: 20060309
  9. CLOZAPINE [Suspect]
     Dosage: 100 MG
     Dates: start: 20060314, end: 20060407
  10. ... [Suspect]
  11. '' [Suspect]
  12. / [Suspect]

REACTIONS (2)
  - DELIRIUM [None]
  - RASH [None]
